FAERS Safety Report 20327105 (Version 1)
Quarter: 2022Q1

REPORT INFORMATION
  Report Type: Spontaneous
  Country: US (occurrence: None)
  Receive Date: 20220112
  Receipt Date: 20220112
  Transmission Date: 20220423
  Serious: No
  Sender: FDA-Public Use
  Company Number: 2022A013114

PATIENT
  Age: 68 Year
  Sex: Male

DRUGS (2)
  1. BUDESONIDE\FORMOTEROL\GLYCOPYRRONIUM [Suspect]
     Active Substance: BUDESONIDE\FORMOTEROL\GLYCOPYRRONIUM
     Indication: Chronic obstructive pulmonary disease
     Dosage: 0 UG/INHAL, TWO TIMES A DAY
     Route: 055
     Dates: start: 2021
  2. SYMBICORT [Suspect]
     Active Substance: BUDESONIDE\FORMOTEROL FUMARATE DIHYDRATE
     Indication: Chronic obstructive pulmonary disease
     Dosage: 0 UG/INHAL, TWO TIMES A DAY
     Route: 055
     Dates: start: 2018

REACTIONS (3)
  - Dyspnoea [Unknown]
  - Irritability [Unknown]
  - Device defective [Unknown]

NARRATIVE: CASE EVENT DATE: 20220101
